FAERS Safety Report 4280496-9 (Version None)
Quarter: 2004Q1

REPORT INFORMATION
  Report Type: 
  Country: None (occurrence: None)
  Receive Date: 20040128
  Receipt Date: 20040128
  Transmission Date: 20041129
  Serious: Yes (Hospitalization)
  Sender: FDA-Public Use
  Company Number: None

PATIENT
  Sex: Male

DRUGS (14)
  1. COUMADIN [Suspect]
     Indication: ATRIAL FIBRILLATION
  2. FUROSEMIDE [Concomitant]
  3. METOPROLOL [Concomitant]
  4. LISINOPRIL [Concomitant]
  5. AUGMENTIN '125' [Concomitant]
  6. INSULIN [Concomitant]
  7. SINEMET [Concomitant]
  8. RABEPRAZOLE SODIUM [Concomitant]
  9. SERTRALINE HCL [Concomitant]
  10. DORZOLAMIDE/TIMOLOL [Concomitant]
  11. BRIMONIDINE [Concomitant]
  12. LATANOPROST [Concomitant]
  13. PREDNISOLONE [Concomitant]
  14. TERAZOSIN HCL [Concomitant]

REACTIONS (1)
  - INTERNATIONAL NORMALISED RATIO INCREASED [None]
